FAERS Safety Report 22529669 (Version 1)
Quarter: 2023Q2

REPORT INFORMATION
  Report Type: Spontaneous
  Country: CM (occurrence: CM)
  Receive Date: 20230607
  Receipt Date: 20230607
  Transmission Date: 20230721
  Serious: Yes (Other)
  Sender: FDA-Public Use
  Company Number: CM-002147023-NVSC2023CM127232

PATIENT
  Sex: Female

DRUGS (1)
  1. TEGRETOL [Suspect]
     Active Substance: CARBAMAZEPINE
     Indication: Partial seizures
     Dosage: 200 MG, BID
     Route: 065

REACTIONS (4)
  - Oropharyngeal pain [Unknown]
  - Pyrexia [Unknown]
  - Vomiting [Unknown]
  - Nausea [Unknown]
